FAERS Safety Report 15164599 (Version 2)
Quarter: 2018Q3

REPORT INFORMATION
  Report Type: Spontaneous
  Country: CH (occurrence: CH)
  Receive Date: 20180719
  Receipt Date: 20180810
  Transmission Date: 20181010
  Serious: Yes (Death)
  Sender: FDA-Public Use
  Company Number: CH-BAYER-2018-133893

PATIENT
  Sex: Male

DRUGS (5)
  1. MORPHIN [Concomitant]
     Active Substance: MORPHINE
  2. ADEMPAS [Suspect]
     Active Substance: RIOCIGUAT
     Indication: PULMONARY HYPERTENSION
     Dosage: 1 MG, TID (FIRST SHIPPED ON 13?FEB?2018)
     Dates: start: 20180219
  3. OXYGEN. [Concomitant]
     Active Substance: OXYGEN
     Indication: PULMONARY HYPERTENSION
  4. XARELTO [Concomitant]
     Active Substance: RIVAROXABAN
  5. PAROXETIN [Concomitant]
     Active Substance: PAROXETINE HYDROCHLORIDE

REACTIONS (1)
  - Acute respiratory failure [Fatal]

NARRATIVE: CASE EVENT DATE: 2018
